FAERS Safety Report 22322676 (Version 1)
Quarter: 2023Q2

REPORT INFORMATION
  Report Type: Spontaneous
  Country: US (occurrence: US)
  Receive Date: 20230516
  Receipt Date: 20230516
  Transmission Date: 20230722
  Serious: No
  Sender: FDA-Public Use
  Company Number: AXS2022-283

PATIENT
  Sex: Female

DRUGS (9)
  1. SUNOSI [Suspect]
     Active Substance: SOLRIAMFETOL
     Indication: Narcolepsy
     Dosage: UNK
  2. ACETAMINOPHEN [Concomitant]
     Active Substance: ACETAMINOPHEN
     Indication: Back pain
     Dosage: UNK
  3. IBUPROFEN [Concomitant]
     Active Substance: IBUPROFEN
     Indication: Back pain
     Dosage: UNK
  4. XYREM [Concomitant]
     Active Substance: SODIUM OXYBATE
     Indication: Product used for unknown indication
     Dosage: UNK
  5. LORAZEPAM [Concomitant]
     Active Substance: LORAZEPAM
     Indication: Product used for unknown indication
     Dosage: 1MG  TABLET, 1 TABLET BY MOUTH 4 TIMES DAILY AS NEEDED
     Route: 048
  6. ALBUTEROL [Concomitant]
     Active Substance: ALBUTEROL
     Indication: Product used for unknown indication
     Dosage: UNK
  7. OMEGA 3 [Concomitant]
     Active Substance: CAPSAICIN
     Indication: Product used for unknown indication
     Dosage: UNK
  8. VITAMINS [Concomitant]
     Active Substance: VITAMINS
     Indication: Product used for unknown indication
     Dosage: UNK
  9. Iron probiotic [Concomitant]
     Indication: Product used for unknown indication
     Dosage: UNK

REACTIONS (2)
  - Anxiety [Unknown]
  - Drug ineffective [Unknown]
